FAERS Safety Report 9522397 (Version 2)
Quarter: 2013Q4

REPORT INFORMATION
  Report Type: Spontaneous
  Country: JP (occurrence: JP)
  Receive Date: 20130913
  Receipt Date: 20131218
  Transmission Date: 20140711
  Serious: Yes (Hospitalization)
  Sender: FDA-Public Use
  Company Number: JP-ROCHE-1275607

PATIENT
  Age: 58 Year
  Sex: Female
  Weight: 55 kg

DRUGS (4)
  1. XELODA [Suspect]
     Indication: COLON CANCER
     Route: 048
     Dates: start: 20130815, end: 20130823
  2. MAGLAX [Concomitant]
     Indication: POSTOPERATIVE CARE
     Route: 048
     Dates: start: 20130713
  3. MIYA BM [Concomitant]
     Indication: POSTOPERATIVE CARE
     Route: 048
     Dates: start: 20130713
  4. MYSLEE [Concomitant]
     Indication: INSOMNIA
     Route: 048

REACTIONS (1)
  - Stevens-Johnson syndrome [Recovered/Resolved]
